FAERS Safety Report 8521496-X (Version None)
Quarter: 2012Q3

REPORT INFORMATION
  Report Type: 
  Country: None (occurrence: None)
  Receive Date: 20120719
  Receipt Date: 20120709
  Transmission Date: 20120928
  Serious: Yes (Other)
  Sender: FDA-Public Use
  Company Number: JP-VERTEX PHARMACEUTICALS INC.-AE-2012-006007

PATIENT
  Age: 43 Year
  Sex: Female

DRUGS (4)
  1. TELAVIC (TELAPREVIR) [Suspect]
     Indication: HEPATITIS C
     Route: 048
     Dates: start: 20120301
  2. RIBAVIRIN [Concomitant]
     Route: 048
     Dates: start: 20120301
  3. MUCOSTA [Concomitant]
     Route: 048
     Dates: start: 20120328
  4. PEGINTERFERON ALFA-2B [Concomitant]
     Route: 058
     Dates: start: 20120301

REACTIONS (1)
  - NEUTROPHIL COUNT DECREASED [None]
